FAERS Safety Report 4935024-9 (Version None)
Quarter: 2006Q1

REPORT INFORMATION
  Report Type: 
  Country: None (occurrence: None)
  Receive Date: 20060306
  Receipt Date: 20060306
  Transmission Date: 20060701
  Serious: Yes (Other)
  Sender: FDA-Public Use
  Company Number: None

PATIENT
  Sex: Female
  Weight: 94.8018 kg

DRUGS (1)
  1. ZOCOR [Suspect]
     Indication: HYPERLIPIDAEMIA
     Dosage: 40 MG ONE QHS
     Dates: start: 20051201

REACTIONS (3)
  - ABASIA [None]
  - MUSCULAR WEAKNESS [None]
  - SIMILAR REACTION ON PREVIOUS EXPOSURE TO DRUG [None]
